FAERS Safety Report 6029708-1 (Version None)
Quarter: 2009Q1

REPORT INFORMATION
  Report Type: 
  Country: None (occurrence: None)
  Receive Date: 20090107
  Receipt Date: 20081226
  Transmission Date: 20090719
  Serious: Yes (Death)
  Sender: FDA-Public Use
  Company Number: JP-PFIZER INC-2009151807

PATIENT

DRUGS (11)
  1. ZYVOX [Suspect]
     Indication: SEPSIS
     Dosage: 600 MG, 2X/DAY
     Route: 042
     Dates: start: 20080406, end: 20080416
  2. VANCOMYCIN [Concomitant]
  3. MEROPEN [Concomitant]
     Dates: start: 20080406, end: 20080407
  4. MICAFUNGIN SODIUM [Concomitant]
     Dates: end: 20080407
  5. DECADRON [Concomitant]
     Dates: start: 20080406, end: 20080409
  6. METILON [Concomitant]
     Dates: end: 20080406
  7. LASIX [Concomitant]
     Dates: start: 20080406, end: 20080410
  8. HUMULIN R [Concomitant]
     Dates: start: 20080406, end: 20080410
  9. MEYLON [Concomitant]
     Dates: start: 20080408, end: 20080410
  10. ACYCLOVIR [Concomitant]
     Dates: start: 20080406, end: 20080410
  11. IMMUNE GLOBULIN INTRAVENOUS (HUMAN) [Concomitant]
     Dates: start: 20080406, end: 20080408

REACTIONS (4)
  - ANAEMIA [None]
  - CARDIAC ARREST [None]
  - PLATELET COUNT DECREASED [None]
  - WHITE BLOOD CELL COUNT DECREASED [None]
